FAERS Safety Report 25028776 (Version 1)
Quarter: 2025Q1

REPORT INFORMATION
  Report Type: Report from Study
  Country: CA (occurrence: CA)
  Receive Date: 20250302
  Receipt Date: 20250302
  Transmission Date: 20250409
  Serious: Yes (Other)
  Sender: ABBVIE
  Company Number: CA-ABBVIE-6152888

PATIENT
  Sex: Female
  Weight: 77.5 kg

DRUGS (1)
  1. SKYRIZI [Suspect]
     Active Substance: RISANKIZUMAB-RZAA
     Indication: Crohn^s disease
     Dosage: LDD: FEB 5 2025
     Route: 042

REACTIONS (5)
  - Cardiac failure congestive [Unknown]
  - Arthralgia [Not Recovered/Not Resolved]
  - Spinal rod insertion [Not Recovered/Not Resolved]
  - Intestinal resection [Unknown]
  - Device breakage [Not Recovered/Not Resolved]
